FAERS Safety Report 5490692-0 (Version None)
Quarter: 2007Q4

REPORT INFORMATION
  Report Type: 
  Country: None (occurrence: None)
  Receive Date: 20071019
  Receipt Date: 20071017
  Transmission Date: 20080405
  Serious: Yes (Other)
  Sender: FDA-Public Use
  Company Number: A0688123A

PATIENT
  Age: 40 Year
  Sex: Female

DRUGS (2)
  1. ALLI [Suspect]
     Dates: start: 20071004, end: 20071014
  2. CENTRUM [Concomitant]

REACTIONS (5)
  - FEAR [None]
  - PERIPHERAL COLDNESS [None]
  - STRESS [None]
  - TREMOR [None]
  - VAGINAL HAEMORRHAGE [None]
